FAERS Safety Report 7126814-5 (Version None)
Quarter: 2010Q4

REPORT INFORMATION
  Report Type: 
  Country: None (occurrence: None)
  Receive Date: 20101129
  Receipt Date: 20091019
  Transmission Date: 20110411
  Serious: No
  Sender: FDA-Public Use
  Company Number: US-PFIZER INC-2009286662

PATIENT
  Sex: Male
  Weight: 89.8 kg

DRUGS (3)
  1. VIAGRA [Suspect]
     Indication: ERECTILE DYSFUNCTION
     Dosage: 50 MG, UNK
     Route: 048
     Dates: start: 20091017
  2. METOPROLOL [Concomitant]
     Dosage: 50 MG, UNK
  3. CRESTOR [Concomitant]
     Dosage: 20 MG, UNK

REACTIONS (1)
  - DYSPEPSIA [None]
